FAERS Safety Report 5223148-0 (Version None)
Quarter: 2007Q1

REPORT INFORMATION
  Report Type: 
  Country: None (occurrence: None)
  Receive Date: 20070125
  Receipt Date: 20070117
  Transmission Date: 20070707
  Serious: Yes (Other)
  Sender: FDA-Public Use
  Company Number: GXKR2007IN00900

PATIENT
  Age: 46 Year
  Sex: Male

DRUGS (1)
  1. CLOZAPINE (NGX) (CLOZAPINE) [Suspect]
     Indication: BIPOLAR DISORDER
     Dosage: 50 MG, QD,

REACTIONS (7)
  - ANGIOEDEMA [None]
  - BLISTER [None]
  - FLUSHING [None]
  - HYPERSENSITIVITY [None]
  - PERIORBITAL OEDEMA [None]
  - PYREXIA [None]
  - SKIN EXFOLIATION [None]
